FAERS Safety Report 6366345-3 (Version None)
Quarter: 2009Q3

REPORT INFORMATION
  Report Type: 
  Country: None (occurrence: None)
  Receive Date: 20090921
  Receipt Date: 20090911
  Transmission Date: 20100115
  Serious: Yes (Other)
  Sender: FDA-Public Use
  Company Number: IT-AMGEN-US364370

PATIENT
  Sex: Female

DRUGS (4)
  1. ENBREL [Suspect]
     Indication: PSORIATIC ARTHROPATHY
     Dosage: 50 MG WEEKLY
     Route: 058
     Dates: start: 20090623, end: 20090623
  2. FOLINA [Concomitant]
     Route: 065
     Dates: start: 20030615
  3. DELTACORTENE [Concomitant]
     Route: 065
     Dates: start: 20030615
  4. METHOTREXATE [Concomitant]
     Route: 065
     Dates: start: 20030215

REACTIONS (2)
  - DYSPNOEA [None]
  - LARYNGOSPASM [None]
